FAERS Safety Report 8202295-5 (Version None)
Quarter: 2012Q1

REPORT INFORMATION
  Report Type: 
  Country: None (occurrence: None)
  Receive Date: 20120312
  Receipt Date: 20120306
  Transmission Date: 20120608
  Serious: Yes (Death, Hospitalization, Disabling)
  Sender: FDA-Public Use
  Company Number: IT-CELGENEUS-083-AB007-11122860

PATIENT
  Sex: Female
  Weight: 50 kg

DRUGS (10)
  1. ABRAXANE [Suspect]
     Dosage: 125 MILLIGRAM/SQ. METER
     Route: 041
     Dates: start: 20111212, end: 20120103
  2. PAROXETINE HCL [Concomitant]
     Dosage: 20 MILLIGRAM
     Route: 048
     Dates: start: 20111116
  3. METOPROLOLO [Concomitant]
     Dosage: 50 MILLIGRAM
     Route: 048
     Dates: start: 20111116
  4. GEMCITABINE [Suspect]
     Dosage: 1000 MILLIGRAM/SQ. METER
     Route: 041
     Dates: start: 20111212, end: 20120103
  5. ENOXAPARIN SODIUM [Concomitant]
     Dosage: 4000 IU (INTERNATIONAL UNIT)
     Route: 058
     Dates: start: 20111116
  6. REPAGLINIDE [Concomitant]
     Dosage: 1 MILLIGRAM
     Route: 048
     Dates: start: 20111116
  7. METEDRINA [Concomitant]
     Dosage: 3000 MILLIGRAM
     Route: 048
     Dates: start: 20111116
  8. INSULIN [Concomitant]
     Dosage: 6 IU (INTERNATIONAL UNIT)
     Route: 058
     Dates: start: 20111116
  9. DELORAZEPAM [Concomitant]
     Dosage: .38 MILLIGRAM
     Route: 048
     Dates: start: 20111116
  10. CALCIUM CARBONATE [Concomitant]
     Route: 048
     Dates: start: 20111116

REACTIONS (4)
  - VOMITING [None]
  - VISUAL ACUITY REDUCED [None]
  - CONFUSIONAL STATE [None]
  - GENERAL PHYSICAL HEALTH DETERIORATION [None]
